FAERS Safety Report 11155687 (Version 1)
Quarter: 2015Q2

REPORT INFORMATION
  Report Type: Spontaneous
  Country: US (occurrence: None)
  Receive Date: 20150529
  Receipt Date: 20150529
  Transmission Date: 20150821
  Serious: No
  Sender: FDA-Public Use
  Company Number: None

PATIENT
  Age: 44 Year
  Sex: Female

DRUGS (1)
  1. KOATE [Suspect]
     Active Substance: ANTIHEMOPHILIC FACTOR HUMAN
     Indication: THROMBOTIC MICROANGIOPATHY
     Dosage: 3000  TWICE A WEEK  IV
     Route: 042

REACTIONS (2)
  - Malaise [None]
  - Incorrect dose administered [None]
